FAERS Safety Report 9459923 (Version 1)
Quarter: 2013Q3

REPORT INFORMATION
  Report Type: Spontaneous
  Country: IT (occurrence: None)
  Receive Date: 20130809
  Receipt Date: 20130809
  Transmission Date: 20140515
  Serious: Yes (Life-Threatening)
  Sender: FDA-Public Use
  Company Number: IT-SEPTODONT-201301307

PATIENT
  Age: 68 Year
  Sex: Male

DRUGS (2)
  1. MEPIVACAINE [Suspect]
     Indication: LOCAL ANAESTHESIA
     Dosage: 1-DF TOTAL DENTAL
     Route: 004
     Dates: start: 20130410, end: 20130410
  2. AMOXICILLIN [Concomitant]

REACTIONS (5)
  - Flushing [None]
  - Hypotension [None]
  - Malaise [None]
  - Oxygen saturation decreased [None]
  - Post procedural complication [None]
